FAERS Safety Report 25245471 (Version 1)
Quarter: 2025Q2

REPORT INFORMATION
  Report Type: Report from Study
  Country: US (occurrence: US)
  Receive Date: 20250428
  Receipt Date: 20250428
  Transmission Date: 20250717
  Serious: No
  Sender: SUNOVION
  Company Number: US-SUMITOMO PHARMA SWITZERLAND GMBH-2025SPA003789

PATIENT

DRUGS (7)
  1. ORGOVYX [Suspect]
     Active Substance: RELUGOLIX
     Indication: Prostate cancer
     Dosage: 120 MG, QD
     Route: 048
     Dates: start: 20241120
  2. ASPIRIN AND DIPYRIDAMOLE [Concomitant]
     Active Substance: ASPIRIN\DIPYRIDAMOLE
     Route: 065
  3. EZETIMIBE [Concomitant]
     Active Substance: EZETIMIBE
     Route: 065
  4. LOSARTAN POTASSIUM [Concomitant]
     Active Substance: LOSARTAN POTASSIUM
     Route: 065
  5. SPIRONOLACTONE [Concomitant]
     Active Substance: SPIRONOLACTONE
     Route: 065
  6. TAMSULOSIN [Concomitant]
     Active Substance: TAMSULOSIN
     Route: 065
  7. ATORVASTATIN CALCIUM [Concomitant]
     Active Substance: ATORVASTATIN CALCIUM
     Route: 065

REACTIONS (2)
  - Pain in extremity [Unknown]
  - Product dose omission issue [Unknown]
